FAERS Safety Report 7537168-4 (Version None)
Quarter: 2011Q2

REPORT INFORMATION
  Report Type: 
  Country: None (occurrence: None)
  Receive Date: 20110609
  Receipt Date: 20110603
  Transmission Date: 20111010
  Serious: Yes (Death, Other)
  Sender: FDA-Public Use
  Company Number: JP-PFIZER INC-2011098092

PATIENT
  Age: 101 Year
  Sex: Female

DRUGS (1)
  1. PIPERACILLIN AND TAZOBACTAM [Suspect]
     Dosage: 13.5 MG, UNK
     Route: 041
     Dates: start: 20110331, end: 20110407

REACTIONS (1)
  - ASPHYXIA [None]
